FAERS Safety Report 9225525 (Version 2)
Quarter: 2013Q2

REPORT INFORMATION
  Report Type: Spontaneous
  Country: US (occurrence: US)
  Receive Date: 20130411
  Receipt Date: 20130524
  Transmission Date: 20140414
  Serious: Yes (Hospitalization, Other)
  Sender: FDA-Public Use
  Company Number: US-PFIZER INC-2013113574

PATIENT
  Age: 68 Year
  Sex: Male
  Weight: 93.9 kg

DRUGS (12)
  1. TIKOSYN [Suspect]
     Indication: ARRHYTHMIA
     Dosage: 500 UG, 2X/DAY
     Route: 048
     Dates: start: 2010
  2. PLAVIX [Concomitant]
     Dosage: UNK
  3. COUMADINE [Concomitant]
     Dosage: UNK
  4. DILANTIN [Concomitant]
     Dosage: UNK
  5. FOLIC ACID [Concomitant]
     Dosage: UNK
  6. LISINOPRIL [Concomitant]
     Indication: HYPERTENSION
     Dosage: 5 MG, 1X/DAY
  7. SINGULAIR [Concomitant]
     Dosage: UNK
  8. CRESTOR [Concomitant]
     Dosage: 5 MG, UNK
  9. METHOTREXATE [Concomitant]
     Indication: RHEUMATOID ARTHRITIS
     Dosage: UNK, WEEKLY
  10. ORENCIA [Concomitant]
     Indication: RHEUMATOID ARTHRITIS
     Dosage: UNK, MONTHLY
     Route: 042
  11. OMEPRAZOLE [Concomitant]
     Indication: GASTRIC DISORDER
     Dosage: 20 MG, UNK
  12. ASPIRIN [Concomitant]
     Dosage: UNK

REACTIONS (3)
  - Myocardial infarction [Unknown]
  - Electrocardiogram QT prolonged [Unknown]
  - Wrong technique in drug usage process [Unknown]
